FAERS Safety Report 7603952-1 (Version None)
Quarter: 2011Q3

REPORT INFORMATION
  Report Type: 
  Country: None (occurrence: None)
  Receive Date: 20110712
  Receipt Date: 20110630
  Transmission Date: 20111222
  Serious: Yes (Other)
  Sender: FDA-Public Use
  Company Number: DK-ASTRAZENECA-2011SE35463

PATIENT
  Age: 47 Year
  Sex: Female

DRUGS (6)
  1. ATENOLOL [Suspect]
  2. MORPHINE SULFATE [Suspect]
  3. DOLOPROCT [Suspect]
  4. NEXIUM [Suspect]
     Route: 048
  5. IBUPROFEN [Suspect]
  6. TOLVON [Suspect]

REACTIONS (8)
  - EYE DISORDER [None]
  - GENERAL PHYSICAL HEALTH DETERIORATION [None]
  - ABDOMINAL PAIN [None]
  - CHEST DISCOMFORT [None]
  - POST PROCEDURAL COMPLICATION [None]
  - INFECTION [None]
  - BACK DISORDER [None]
  - LIMB INJURY [None]
